FAERS Safety Report 5414881-6 (Version None)
Quarter: 2007Q3

REPORT INFORMATION
  Report Type: 
  Country: None (occurrence: None)
  Receive Date: 20070815
  Receipt Date: 20061213
  Transmission Date: 20080115
  Serious: No
  Sender: FDA-Public Use
  Company Number: US-KINGPHARMUSA00001-K200601597

PATIENT

DRUGS (7)
  1. SEPTRA [Suspect]
     Indication: WOUND INFECTION STAPHYLOCOCCAL
     Dosage: UNK, QD
     Route: 048
     Dates: start: 20061207
  2. GLIMEPIRIDE [Suspect]
     Indication: TYPE 2 DIABETES MELLITUS
     Dosage: 2 MG, QD
     Route: 048
     Dates: start: 20060701, end: 20061206
  3. GLIMEPIRIDE [Suspect]
     Dosage: 4 MG, QD
     Route: 048
     Dates: start: 20061207
  4. QUINAPRIL HCL [Concomitant]
  5. RANITIDINE HYDROCHLORIDE [Concomitant]
  6. ROSIGLITAZONE [Suspect]
     Indication: TYPE 2 DIABETES MELLITUS
     Dosage: 2 MG, QD
     Route: 048
     Dates: start: 20060701, end: 20061206
  7. ROSIGLITAZONE [Suspect]
     Dosage: 4 MG, QD
     Route: 048
     Dates: start: 20061207

REACTIONS (2)
  - HEADACHE [None]
  - VISION BLURRED [None]
